FAERS Safety Report 7905765-X (Version None)
Quarter: 2011Q4

REPORT INFORMATION
  Report Type: 
  Country: None (occurrence: None)
  Receive Date: 20111108
  Receipt Date: 20111025
  Transmission Date: 20120403
  Serious: Yes (Hospitalization)
  Sender: FDA-Public Use
  Company Number: TCI2011A05356

PATIENT
  Age: 71 Year
  Sex: Female

DRUGS (6)
  1. GLIMICRON (GLICLAZIDE) [Concomitant]
  2. ANPLAG (SARPOGRELATE HYDROCHLORIDE) [Concomitant]
  3. LIVALO [Concomitant]
  4. PROTECADIN (LAFUTIDINE) [Concomitant]
  5. ACTOS [Suspect]
     Indication: TYPE 2 DIABETES MELLITUS
     Dosage: 30 MG (30 MG, 1 D), PER ORAL
     Route: 048
     Dates: start: 20050422, end: 20110101
  6. GLUFAST (MITIGLINIDE CALCIUM) [Suspect]
     Indication: TYPE 2 DIABETES MELLITUS
     Dosage: 30 MG (10 MG, 3 IN 1 D), PER ORAL
     Route: 048
     Dates: start: 20100611, end: 20110101

REACTIONS (3)
  - OEDEMA PERIPHERAL [None]
  - CEREBRAL INFARCTION [None]
  - ALTERED STATE OF CONSCIOUSNESS [None]
